FAERS Safety Report 14438587 (Version 25)
Quarter: 2021Q2

REPORT INFORMATION
  Report Type: Report from Study
  Country: CA (occurrence: CA)
  Receive Date: 20180125
  Receipt Date: 20210523
  Transmission Date: 20210716
  Serious: Yes (Hospitalization, Other)
  Sender: FDA-Public Use
  Company Number: PHHY2017CA116099

PATIENT
  Age: 85 Year
  Sex: Female

DRUGS (10)
  1. SANDOSTATIN LAR DEPOT [Suspect]
     Active Substance: OCTREOTIDE ACETATE
     Dosage: 30 MG, Q2W
     Route: 030
     Dates: start: 20170707
  2. OCTREOTIDE. [Suspect]
     Active Substance: OCTREOTIDE
     Indication: CARCINOID TUMOUR
     Dosage: 100 UG, TID
     Route: 058
  3. OCTREOTIDE. [Suspect]
     Active Substance: OCTREOTIDE
  4. OCTREOTIDE. [Suspect]
     Active Substance: OCTREOTIDE
  5. SANDOSTATIN LAR DEPOT [Suspect]
     Active Substance: OCTREOTIDE ACETATE
     Indication: CARCINOID TUMOUR
     Dosage: 20 MG, Q3W (EVERY 3 WEEKS)
     Route: 030
  6. BISOPROLOL [Concomitant]
     Active Substance: BISOPROLOL
     Indication: CARDIAC DISORDER
     Dosage: UNK
     Route: 065
  7. HYDROCHLOROTHIAZIDE. [Concomitant]
     Active Substance: HYDROCHLOROTHIAZIDE
     Indication: CARDIAC DISORDER
     Dosage: UNK
     Route: 065
  8. SANDOSTATIN LAR DEPOT [Suspect]
     Active Substance: OCTREOTIDE ACETATE
     Dosage: UNK UNK, Q2W
     Route: 030
  9. APIXABAN [Concomitant]
     Active Substance: APIXABAN
     Indication: CARDIAC DISORDER
     Dosage: UNK
     Route: 065
  10. IRBESARTAN. [Concomitant]
     Active Substance: IRBESARTAN
     Indication: CARDIAC DISORDER
     Dosage: UNK
     Route: 065

REACTIONS (35)
  - Anxiety [Unknown]
  - Fall [Unknown]
  - Injection site bruising [Unknown]
  - Blood pressure decreased [Unknown]
  - Wound [Unknown]
  - Heart rate irregular [Unknown]
  - Synovial cyst [Unknown]
  - Vertigo [Unknown]
  - Weight increased [Unknown]
  - Furuncle [Unknown]
  - Injection site pain [Unknown]
  - Malaise [Unknown]
  - Blood potassium decreased [Unknown]
  - Pneumonia [Unknown]
  - Weight decreased [Unknown]
  - Body temperature decreased [Unknown]
  - Peripheral swelling [Unknown]
  - Dizziness [Unknown]
  - Blood magnesium decreased [Unknown]
  - Blood pressure increased [Unknown]
  - Limb injury [Unknown]
  - Inappropriate schedule of product administration [Unknown]
  - Skin injury [Unknown]
  - Peritoneal disorder [Unknown]
  - Peripheral swelling [Recovered/Resolved]
  - Nasal congestion [Unknown]
  - Fluid retention [Unknown]
  - Dental caries [Unknown]
  - Fatigue [Unknown]
  - Headache [Recovering/Resolving]
  - Contusion [Unknown]
  - Pain in extremity [Recovered/Resolved]
  - Vision blurred [Unknown]
  - Injection site mass [Unknown]
  - Diarrhoea [Unknown]

NARRATIVE: CASE EVENT DATE: 20170803
